FAERS Safety Report 11984636 (Version 2)
Quarter: 2016Q1

REPORT INFORMATION
  Report Type: Spontaneous
  Country: JP (occurrence: JP)
  Receive Date: 20160201
  Receipt Date: 20160317
  Transmission Date: 20160526
  Serious: Yes (Death, Life-Threatening, Hospitalization)
  Sender: FDA-Public Use
  Company Number: JP-BAYER-2015-385758

PATIENT
  Age: 82 Year
  Sex: Male
  Weight: 45 kg

DRUGS (13)
  1. XARELTO [Suspect]
     Active Substance: RIVAROXABAN
     Indication: CEREBROVASCULAR ACCIDENT PROPHYLAXIS
  2. XARELTO [Suspect]
     Active Substance: RIVAROXABAN
     Indication: ATRIAL FIBRILLATION
     Dosage: 10 MG DAILY DOSE
     Route: 048
     Dates: start: 20130515, end: 20131121
  3. ATORVASTATIN [Concomitant]
     Active Substance: ATORVASTATIN
     Indication: DYSLIPIDAEMIA
     Dosage: 100 MG, QD
     Route: 048
  4. TAKEPRON [Concomitant]
     Active Substance: LANSOPRAZOLE
     Indication: PROPHYLAXIS AGAINST GASTROINTESTINAL ULCER
     Dosage: 15 MG, QD
     Route: 048
     Dates: start: 20130429
  5. TSUMURA DAISAIKOTOU [Concomitant]
     Indication: CONSTIPATION
     Dosage: 7.5 UNK, UNK
     Route: 048
  6. NICERGOLINE [Concomitant]
     Active Substance: NICERGOLINE
     Indication: CEREBROVASCULAR DISORDER
     Dosage: 15 MG, QD
     Route: 048
     Dates: end: 20140121
  7. FORSENID [Concomitant]
     Indication: CONSTIPATION
     Dosage: DAILY DOSE 24 MG
     Route: 048
  8. ATELEC [Concomitant]
     Active Substance: CILNIDIPINE
     Indication: HYPERTENSION
     Dosage: 10 MG, UNK
     Route: 048
  9. XARELTO [Suspect]
     Active Substance: RIVAROXABAN
     Indication: BRAIN STEM INFARCTION
     Dosage: DAILY DOSE 10 MG
     Route: 048
     Dates: start: 20131124, end: 20140121
  10. BAYASPIRIN [Suspect]
     Active Substance: ASPIRIN
     Indication: CEREBRAL INFARCTION
     Dosage: 100 MG, QD
     Route: 048
     Dates: start: 20130429, end: 20131121
  11. ETHYL ICOSAPENTATE [Concomitant]
     Active Substance: ICOSAPENT ETHYL
     Dosage: DAILY DOSE 1800 MG
     Route: 048
     Dates: end: 20131121
  12. ANOPROLIN [Concomitant]
     Active Substance: ALLOPURINOL
     Indication: HYPERURICAEMIA
     Dosage: 200 MG, QD
     Route: 048
  13. MENESIT [Concomitant]
     Active Substance: CARBIDOPA\LEVODOPA
     Indication: PARKINSON^S DISEASE
     Dosage: 300 MG, QD
     Route: 048

REACTIONS (3)
  - Cardiac failure congestive [Fatal]
  - Cerebral ventricular rupture [Recovered/Resolved]
  - Cerebral haemorrhage [Recovered/Resolved]

NARRATIVE: CASE EVENT DATE: 20131122
